FAERS Safety Report 6377169-5 (Version None)
Quarter: 2009Q3

REPORT INFORMATION
  Report Type: 
  Country: None (occurrence: None)
  Receive Date: 20090925
  Receipt Date: 20090921
  Transmission Date: 20100115
  Serious: Yes (Other)
  Sender: FDA-Public Use
  Company Number: B0591000A

PATIENT
  Age: 69 Year
  Sex: Female

DRUGS (2)
  1. ALLI [Suspect]
     Indication: DRUG USE FOR UNKNOWN INDICATION
     Route: 065
     Dates: start: 20090101
  2. BLOOD PRESSURE MEDICATION [Concomitant]

REACTIONS (1)
  - LIVER FUNCTION TEST ABNORMAL [None]
